FAERS Safety Report 26119032 (Version 1)
Quarter: 2025Q4

REPORT INFORMATION
  Report Type: Spontaneous
  Country: EU (occurrence: EU)
  Receive Date: 20251204
  Receipt Date: 20251204
  Transmission Date: 20260118
  Serious: Yes (Other)
  Sender: CELLTRION
  Company Number: None

PATIENT

DRUGS (4)
  1. TRASTUZUMAB [Suspect]
     Active Substance: TRASTUZUMAB
     Indication: Invasive lobular breast carcinoma
     Dosage: UNK
     Route: 042
     Dates: start: 20250304, end: 20250421
  2. TRASTUZUMAB [Suspect]
     Active Substance: TRASTUZUMAB
     Dosage: UNK
     Route: 017
     Dates: start: 20240806, end: 20241028
  3. ENHERTU [Suspect]
     Active Substance: FAM-TRASTUZUMAB DERUXTECAN-NXKI
     Indication: Invasive lobular breast carcinoma
     Dosage: 4.4MG/KG, EVERY 21 DAYS
     Route: 042
     Dates: start: 20250512, end: 20250812
  4. DEXAMETHASONE [Suspect]
     Active Substance: DEXAMETHASONE
     Indication: Metastases to central nervous system
     Dosage: 1 MILLIGRAM, EVERY 1 DAY
     Route: 048
     Dates: start: 20250605

REACTIONS (2)
  - Osteonecrosis [Unknown]
  - Intentional product use issue [Unknown]

NARRATIVE: CASE EVENT DATE: 20250930
